FAERS Safety Report 5252581-6 (Version None)
Quarter: 2007Q1

REPORT INFORMATION
  Report Type: 
  Country: None (occurrence: None)
  Receive Date: 20070227
  Receipt Date: 20070212
  Transmission Date: 20070707
  Serious: Yes (Other)
  Sender: FDA-Public Use
  Company Number: 235351

PATIENT
  Age: 54 Year
  Sex: Male
  Weight: 86 kg

DRUGS (1)
  1. XOLAIR [Suspect]
     Indication: ASTHMA
     Dosage: Q2W, SUBCUTANEOUS
     Route: 058
     Dates: start: 20061103

REACTIONS (2)
  - LYMPHADENOPATHY MEDIASTINAL [None]
  - PULMONARY EMBOLISM [None]
